FAERS Safety Report 10907245 (Version 1)
Quarter: 2015Q1

REPORT INFORMATION
  Report Type: Spontaneous
  Country: US (occurrence: None)
  Receive Date: 20150309
  Receipt Date: 20150309
  Transmission Date: 20150721
  Serious: No
  Sender: FDA-Public Use
  Company Number: None

PATIENT
  Sex: Female
  Weight: 63.5 kg

DRUGS (3)
  1. 12% LACTIC ACID SKIN TREATMENT LOTION CVS PHARMACY [Suspect]
     Active Substance: COSMETICS
     Indication: DRY SKIN
  2. 12% LACTIC ACID SKIN TREATMENT LOTION CVS PHARMACY [Suspect]
     Active Substance: COSMETICS
     Indication: SKIN HAEMORRHAGE
  3. 12% LACTIC ACID SKIN TREATMENT LOTION CVS PHARMACY [Suspect]
     Active Substance: COSMETICS
     Indication: SKIN FISSURES

REACTIONS (1)
  - Product quality issue [None]
